FAERS Safety Report 23142908 (Version 1)
Quarter: 2023Q4

REPORT INFORMATION
  Report Type: Other
  Country: BD (occurrence: None)
  Receive Date: 20231103
  Receipt Date: 20231103
  Transmission Date: 20240110
  Serious: Yes (Death, Hospitalization)
  Sender: FDA-Public Use
  Company Number: BD-ROCHE-3166336

PATIENT
  Age: 26 Year
  Sex: Male

DRUGS (11)
  1. RITUXIMAB [Suspect]
     Active Substance: RITUXIMAB
     Indication: Immune tolerance induction
     Dosage: LOW DOSE ADMINISTERED 2 WEEKS PRETRANSPLANT, 100 ML OF 0.9% NORMAL SALINE AND ADMINISTERED OVER 4 HO
     Route: 042
  2. MYCOPHENOLATE MOFETIL [Suspect]
     Active Substance: MYCOPHENOLATE MOFETIL
     Indication: Prophylaxis against transplant rejection
     Dosage: ADMINISTERED 2 WEEKS PRIOR TO TRANSPLANTATION
     Route: 065
  3. BASILIXIMAB [Suspect]
     Active Substance: BASILIXIMAB
     Indication: Prophylaxis against transplant rejection
     Dosage: NEXT DOSE ON POST TRANSPLANT DAY 4
     Route: 065
  4. TACROLIMUS [Suspect]
     Active Substance: TACROLIMUS
     Indication: Prophylaxis against transplant rejection
     Dosage: ADMINISTERED 2 WEEKS PRIOR TO TRANSPLANTATION
     Route: 065
  5. PREDNISOLONE [Suspect]
     Active Substance: PREDNISOLONE
     Indication: Prophylaxis against transplant rejection
     Dosage: ADMINISTERED 2 WEEKS PRIOR TO TRANSPLANTATION
     Route: 065
  6. PREDNISOLONE [Suspect]
     Active Substance: PREDNISOLONE
     Route: 065
  7. PREDNISOLONE [Suspect]
     Active Substance: PREDNISOLONE
     Route: 065
  8. PHENIRAMINE [Concomitant]
     Active Substance: PHENIRAMINE
  9. SULFAMETHOXAZOLE\TRIMETHOPRIM [Concomitant]
     Active Substance: SULFAMETHOXAZOLE\TRIMETHOPRIM
     Indication: Antifungal prophylaxis
     Dosage: SULFAMETHOXAZOLE (400 MG) AND TRIMETHOPRIM (80 MG)
  10. VALGANCICLOVIR [Concomitant]
     Active Substance: VALGANCICLOVIR
     Route: 048
  11. HYDROCORTISONE [Concomitant]
     Active Substance: HYDROCORTISONE

REACTIONS (3)
  - Pneumonia cytomegaloviral [Fatal]
  - Respiratory failure [Fatal]
  - Off label use [Unknown]
